FAERS Safety Report 13353395 (Version 1)
Quarter: 2017Q1

REPORT INFORMATION
  Report Type: Spontaneous
  Country: FR (occurrence: FR)
  Receive Date: 20170321
  Receipt Date: 20170321
  Transmission Date: 20170429
  Serious: Yes (Other)
  Sender: FDA-Public Use
  Company Number: FR-ACCORD-049232

PATIENT
  Age: 75 Year
  Sex: Female

DRUGS (4)
  1. ONDANSETRON [Suspect]
     Active Substance: ONDANSETRON
     Indication: BREAST CANCER
     Dosage: 1ST CYCLE.?2ND CYCLE RECEIVED ON 23-JAN-2017, DAY 1
     Route: 042
     Dates: start: 20170102
  2. CYCLOPHOSPHAMIDE/CYCLOPHOSPHAMIDE MONOHYDRATE [Suspect]
     Active Substance: CYCLOPHOSPHAMIDE
     Indication: BREAST CANCER
     Dosage: 1ST CYCLE.?2ND CYCLE RECEIVED ON 23-JAN-2017, 1.2 G IN TOTAL, DAY 1
     Route: 042
     Dates: start: 20170102
  3. DOCETAXEL ACCORD [Suspect]
     Active Substance: DOCETAXEL
     Indication: BREAST CANCER
     Dosage: 2ND CYCLE RECEIVED ON 23-JAN-2017, 182 MG IN TOTAL, DAY 1
     Route: 042
     Dates: start: 20170102
  4. EMEND [Suspect]
     Active Substance: APREPITANT
     Indication: BREAST CANCER
     Dosage: 1 DF (125 MG) ON DAY 1 ON 23-JAN-2017, 80 MG ON DAY 2 AND DAY 3 (25-JAN-2017).
     Route: 048
     Dates: start: 20170123, end: 20170125

REACTIONS (8)
  - Skin exfoliation [Not Recovered/Not Resolved]
  - Palmar-plantar erythrodysaesthesia syndrome [Not Recovered/Not Resolved]
  - Blister [Not Recovered/Not Resolved]
  - Abdominal pain [Not Recovered/Not Resolved]
  - Skin disorder [Unknown]
  - Diarrhoea [Not Recovered/Not Resolved]
  - Gastrointestinal disorder [Unknown]
  - Pain [None]

NARRATIVE: CASE EVENT DATE: 20170202
